FAERS Safety Report 21583752 (Version 1)
Quarter: 2022Q4

REPORT INFORMATION
  Report Type: Spontaneous
  Country: US (occurrence: None)
  Receive Date: 20221110
  Receipt Date: 20221110
  Transmission Date: 20230113
  Serious: Yes (Other)
  Sender: FDA-Public Use
  Company Number: None

PATIENT
  Age: 74 Year
  Sex: Female

DRUGS (1)
  1. LACTULOSE SOLUTION [Suspect]
     Active Substance: LACTULOSE
     Indication: Constipation
     Dosage: 60 ML QD ORAL
     Route: 048

REACTIONS (6)
  - Abdominal pain upper [None]
  - Nausea [None]
  - Product taste abnormal [None]
  - Product odour abnormal [None]
  - Product colour issue [None]
  - Product quality issue [None]

NARRATIVE: CASE EVENT DATE: 20221103
